FAERS Safety Report 5364884-5 (Version None)
Quarter: 2007Q2

REPORT INFORMATION
  Report Type: 
  Country: None (occurrence: None)
  Receive Date: 20070530
  Receipt Date: 20070530
  Transmission Date: 20071010
  Serious: No
  Sender: FDA-Public Use
  Company Number: 2007PV028977

PATIENT
  Age: 61 Year
  Sex: Female

DRUGS (9)
  1. BYETTA [Suspect]
     Indication: DIABETES MELLITUS NON-INSULIN-DEPENDENT
     Dosage: SEE IMAGE
     Route: 058
     Dates: start: 20070219, end: 20070319
  2. BYETTA [Suspect]
     Indication: DIABETES MELLITUS NON-INSULIN-DEPENDENT
     Dosage: SEE IMAGE
     Route: 058
     Dates: start: 20070118
  3. BYETTA [Suspect]
     Indication: DIABETES MELLITUS NON-INSULIN-DEPENDENT
     Dosage: SEE IMAGE
     Route: 058
     Dates: start: 20070320
  4. BYETTA [Suspect]
  5. METFORMIN HYDROCHLORIDE [Concomitant]
  6. GLYNASE [Concomitant]
  7. JANUVIA [Concomitant]
  8. GLUCOPHAGE [Concomitant]
  9. LORTAB [Concomitant]

REACTIONS (2)
  - DECREASED APPETITE [None]
  - MIGRAINE [None]
